FAERS Safety Report 15356826 (Version 1)
Quarter: 2018Q3

REPORT INFORMATION
  Report Type: Spontaneous
  Country: US (occurrence: US)
  Receive Date: 20180906
  Receipt Date: 20180906
  Transmission Date: 20181010
  Serious: No
  Sender: FDA-Public Use
  Company Number: US-SA-2018SA249683

PATIENT
  Age: 73 Year
  Sex: Female

DRUGS (1)
  1. WELCHOL [Suspect]
     Active Substance: COLESEVELAM HYDROCHLORIDE
     Indication: HYPERLIPIDAEMIA
     Dosage: 3750 MG, QD
     Route: 048
     Dates: start: 1998

REACTIONS (4)
  - Therapeutic response unexpected [Unknown]
  - Drug ineffective [Unknown]
  - Malabsorption [Not Recovered/Not Resolved]
  - Medication residue present [Not Recovered/Not Resolved]
